FAERS Safety Report 25408032 (Version 2)
Quarter: 2025Q2

REPORT INFORMATION
  Report Type: Spontaneous
  Country: US (occurrence: US)
  Receive Date: 20250606
  Receipt Date: 20250617
  Transmission Date: 20250717
  Serious: No
  Sender: BAUSCH AND LOMB
  Company Number: US-BAUSCH-BL-2025-007060

PATIENT

DRUGS (1)
  1. NASALCROM [Suspect]
     Active Substance: CROMOLYN SODIUM
     Indication: Nasal congestion
     Route: 045

REACTIONS (4)
  - Dry eye [Not Recovered/Not Resolved]
  - Eye disorder [Unknown]
  - Device delivery system issue [Unknown]
  - Wrong technique in product usage process [Unknown]
